FAERS Safety Report 5844506-7 (Version None)
Quarter: 2008Q3

REPORT INFORMATION
  Report Type: 
  Country: None (occurrence: None)
  Receive Date: 20080812
  Receipt Date: 20080723
  Transmission Date: 20090109
  Serious: Yes (Other)
  Sender: FDA-Public Use
  Company Number: 8035097

PATIENT
  Age: 30 Year
  Sex: Female
  Weight: 51.3 kg

DRUGS (7)
  1. CIMZIA [Suspect]
     Indication: CROHN'S DISEASE
     Dosage: 400 MG 1/2W SC
     Route: 058
     Dates: start: 20080714, end: 20080714
  2. PREVACID [Concomitant]
  3. IMURAN /00001501/ [Concomitant]
  4. ENTOCORT EC [Concomitant]
  5. DARVOCET-N 100 [Concomitant]
  6. LAMICTAL [Concomitant]
  7. IRON SUPPLEMENT [Concomitant]

REACTIONS (5)
  - DISORIENTATION [None]
  - DYSARTHRIA [None]
  - FEELING ABNORMAL [None]
  - PETIT MAL EPILEPSY [None]
  - VISION BLURRED [None]
